FAERS Safety Report 10370458 (Version 2)
Quarter: 2014Q3

REPORT INFORMATION
  Report Type: Spontaneous
  Country: US (occurrence: US)
  Receive Date: 20140808
  Receipt Date: 20140828
  Transmission Date: 20150326
  Serious: No
  Sender: FDA-Public Use
  Company Number: US-BAYER-2014-118317

PATIENT
  Age: 95 Year
  Sex: Female
  Weight: 47.62 kg

DRUGS (2)
  1. ALEVE [Suspect]
     Active Substance: NAPROXEN SODIUM
     Indication: ARTHRALGIA
     Dosage: 1-2 DF, BID
     Route: 048
     Dates: end: 20140802
  2. ALEVE [Suspect]
     Active Substance: NAPROXEN SODIUM
     Indication: ARTHRALGIA
     Dosage: 1-2 DF, BID
     Route: 048
     Dates: start: 20140803

REACTIONS (4)
  - Extra dose administered [None]
  - Incorrect drug administration duration [None]
  - Drug ineffective [None]
  - Expired product administered [None]

NARRATIVE: CASE EVENT DATE: 201407
